FAERS Safety Report 10227318 (Version 1)
Quarter: 2014Q2

REPORT INFORMATION
  Report Type: Spontaneous
  Country: AU (occurrence: AU)
  Receive Date: 20140610
  Receipt Date: 20140610
  Transmission Date: 20141212
  Serious: Yes (Hospitalization)
  Sender: FDA-Public Use
  Company Number: AU-BAYER-2014-077825

PATIENT
  Age: 46 Year
  Sex: Female

DRUGS (1)
  1. YAZ FLEX [Suspect]
     Dosage: UNK
     Route: 048
     Dates: start: 201304, end: 201402

REACTIONS (3)
  - Pulmonary embolism [Unknown]
  - Cardiac disorder [None]
  - Lung disorder [None]
